FAERS Safety Report 24140723 (Version 1)
Quarter: 2024Q3

REPORT INFORMATION
  Report Type: Spontaneous
  Country: US (occurrence: US)
  Receive Date: 20240726
  Receipt Date: 20240726
  Transmission Date: 20241016
  Serious: Yes (Hospitalization)
  Sender: BAYER
  Company Number: US-BAYER-2024A104602

PATIENT
  Age: 33 Year
  Sex: Female
  Weight: 52.7 kg

DRUGS (2)
  1. MIRENA [Suspect]
     Active Substance: LEVONORGESTREL
     Indication: Contraception
     Dosage: 20?G/DAY
     Route: 015
     Dates: start: 20220318, end: 20240426
  2. VITAMINS [Concomitant]
     Active Substance: VITAMINS

REACTIONS (7)
  - Abdominal pain lower [None]
  - Device dislocation [Recovered/Resolved]
  - Decreased appetite [None]
  - Nausea [None]
  - Diarrhoea [None]
  - Fatigue [None]
  - Dyspnoea [None]

NARRATIVE: CASE EVENT DATE: 20240418
